FAERS Safety Report 15978433 (Version 3)
Quarter: 2019Q3

REPORT INFORMATION
  Report Type: Report from Study
  Country: US (occurrence: US)
  Receive Date: 20190219
  Receipt Date: 20190813
  Transmission Date: 20191004
  Serious: Yes (Life-Threatening)
  Sender: FDA-Public Use
  Company Number: US-ROCHE-2263340

PATIENT
  Age: 40 Year
  Sex: Female
  Weight: 113.5 kg

DRUGS (5)
  1. SOLU-MEDROL [Concomitant]
     Active Substance: METHYLPREDNISOLONE SODIUM SUCCINATE
     Dosage: ONGOING YES
     Route: 065
     Dates: start: 201901
  2. OCREVUS [Suspect]
     Active Substance: OCRELIZUMAB
     Dosage: SECOND INFUSION
     Route: 065
     Dates: start: 20190131
  3. ELIQUIS [Concomitant]
     Active Substance: APIXABAN
     Dosage: 2 2.5 MG PILLS TWICE A DAY
     Route: 065
  4. OCREVUS [Suspect]
     Active Substance: OCRELIZUMAB
     Indication: MULTIPLE SCLEROSIS
     Route: 065
  5. OCREVUS [Suspect]
     Active Substance: OCRELIZUMAB
     Dosage: ONGOING YES;REGULAR FULL STRENGTH?MOST RECENT INFUSION:  17/JUL/2019
     Route: 050
     Dates: start: 20190117

REACTIONS (4)
  - Paraesthesia [Not Recovered/Not Resolved]
  - Throat irritation [Recovered/Resolved]
  - Hypoaesthesia [Not Recovered/Not Resolved]
  - Pulmonary embolism [Recovered/Resolved]

NARRATIVE: CASE EVENT DATE: 20190117
